FAERS Safety Report 4883349-8 (Version None)
Quarter: 2006Q1

REPORT INFORMATION
  Report Type: 
  Country: None (occurrence: None)
  Receive Date: 20060118
  Receipt Date: 20060110
  Transmission Date: 20060701
  Serious: Yes (Disabling)
  Sender: FDA-Public Use
  Company Number: US-GLAXOSMITHKLINE-B0406779A

PATIENT
  Age: 39 Year
  Sex: Male

DRUGS (3)
  1. LAMIVUDINE [Suspect]
     Indication: HIV INFECTION
     Route: 065
  2. EFAVIRENZ [Suspect]
     Indication: HIV INFECTION
     Route: 065
  3. TENOFOVIR [Suspect]
     Indication: HIV INFECTION
     Route: 065

REACTIONS (8)
  - ASTHENIA [None]
  - IMMUNE RECONSTITUTION SYNDROME [None]
  - JOINT STIFFNESS [None]
  - MUSCULAR WEAKNESS [None]
  - OEDEMA PERIPHERAL [None]
  - PAIN [None]
  - POLYARTHRITIS [None]
  - SYNOVITIS [None]
